FAERS Safety Report 6902383-7 (Version None)
Quarter: 2010Q3

REPORT INFORMATION
  Report Type: 
  Country: None (occurrence: None)
  Receive Date: 20100803
  Receipt Date: 20080521
  Transmission Date: 20110219
  Serious: Yes (Other)
  Sender: FDA-Public Use
  Company Number: US-PFIZER INC-2008035365

PATIENT
  Sex: Female
  Weight: 77.3 kg

DRUGS (13)
  1. LYRICA [Suspect]
     Indication: PAIN
     Route: 048
     Dates: start: 20080410
  2. LYRICA [Suspect]
     Indication: FIBROMYALGIA
  3. BACLOFEN [Concomitant]
  4. VITAMIN D [Concomitant]
  5. MULTI-VITAMINS [Concomitant]
  6. LASIX [Concomitant]
  7. COUMADIN [Concomitant]
  8. OXYCODONE [Concomitant]
  9. DILAUDID [Concomitant]
  10. ATIVAN [Concomitant]
  11. POTASSIUM [Concomitant]
  12. CALCIUM [Concomitant]
  13. ANTIBIOTICS [Concomitant]

REACTIONS (5)
  - CONFUSIONAL STATE [None]
  - SOMNOLENCE [None]
  - SPEECH DISORDER [None]
  - VISUAL ACUITY REDUCED [None]
  - VISUAL IMPAIRMENT [None]
